FAERS Safety Report 13785042 (Version 1)
Quarter: 2017Q3

REPORT INFORMATION
  Report Type: Spontaneous
  Country: US (occurrence: US)
  Receive Date: 20170724
  Receipt Date: 20170724
  Transmission Date: 20171127
  Serious: No
  Sender: FDA-Public Use
  Company Number: None

PATIENT
  Age: 46 Year
  Sex: Male

DRUGS (1)
  1. SOTALOL. [Suspect]
     Active Substance: SOTALOL
     Indication: HYPERTENSION
     Route: 048
     Dates: start: 20170202, end: 20170705

REACTIONS (1)
  - Respiratory depression [None]

NARRATIVE: CASE EVENT DATE: 20170705
